FAERS Safety Report 13904283 (Version 2)
Quarter: 2017Q3

REPORT INFORMATION
  Report Type: Spontaneous
  Country: US (occurrence: US)
  Receive Date: 20170825
  Receipt Date: 20170829
  Transmission Date: 20171127
  Serious: Yes (Other)
  Sender: FDA-Public Use
  Company Number: US-ROCHE-1984410

PATIENT
  Age: 14 Year
  Sex: Male
  Weight: 55 kg

DRUGS (1)
  1. XOLAIR [Suspect]
     Active Substance: OMALIZUMAB
     Indication: ASTHMA
     Dosage: NO
     Route: 058
     Dates: start: 201210, end: 201706

REACTIONS (1)
  - Eosinophilic oesophagitis [Unknown]

NARRATIVE: CASE EVENT DATE: 201708
